FAERS Safety Report 9324046 (Version 3)
Quarter: 2020Q3

REPORT INFORMATION
  Report Type: Report from Study
  Country: US (occurrence: US)
  Receive Date: 20130603
  Receipt Date: 20200910
  Transmission Date: 20201103
  Serious: No
  Sender: FDA-Public Use
  Company Number: US-SANOFI-AVENTIS-2013SA055110

PATIENT
  Age: 58 Year
  Sex: Female
  Weight: 104.32 kg

DRUGS (16)
  1. FISH OIL [Concomitant]
     Active Substance: FISH OIL
     Indication: CARDIAC DISORDER
     Dosage: 1200 MG,BID
     Route: 065
     Dates: start: 20120510
  2. ARGININE [Concomitant]
     Active Substance: ARGININE
     Dosage: 500 MG,QD
     Route: 065
  3. CALCIUM CARBONATE. [Concomitant]
     Active Substance: CALCIUM CARBONATE
     Dosage: 600 MG,BID
     Route: 065
  4. VITAMIN D3 [Concomitant]
     Active Substance: CHOLECALCIFEROL
     Dosage: 2000 IU,QD
     Route: 065
  5. ACETYLSALICYLIC ACID [Concomitant]
     Active Substance: ASPIRIN
     Dosage: 81 MG,HS
     Route: 065
  6. FUROSEMIDE. [Concomitant]
     Active Substance: FUROSEMIDE
     Indication: OEDEMA
     Dosage: 20 MG,QW
     Route: 065
     Dates: start: 20120917
  7. CENTRUM SILVER [ASCORBIC ACID;CALCIUM;MINERALS NOS;RETINOL;TOCOPHERYL [Concomitant]
  8. AMLODIPINE BESILATE [Concomitant]
     Active Substance: AMLODIPINE BESYLATE
     Indication: HYPERTENSION
     Dosage: 5 MG,QD
     Route: 065
     Dates: start: 20130305
  9. NEBIVOLOL. [Concomitant]
     Active Substance: NEBIVOLOL
     Indication: HYPERTENSION
     Dosage: 10 MG,QD
     Route: 065
     Dates: start: 20130305
  10. GLIMEPIRIDE. [Concomitant]
     Active Substance: GLIMEPIRIDE
     Indication: DIABETES MELLITUS
     Dosage: 4 MG,BID
     Route: 065
     Dates: start: 20091120
  11. METFORMIN [Concomitant]
     Active Substance: METFORMIN HYDROCHLORIDE
     Indication: POLYCYSTIC OVARIES
     Dosage: 1000 MG,BID
     Route: 065
     Dates: start: 1999
  12. VICTOZA [Concomitant]
     Active Substance: LIRAGLUTIDE
     Indication: DIABETES MELLITUS
     Dosage: UNK UNK,QD
     Route: 065
     Dates: start: 201111
  13. METFORMIN [Concomitant]
     Active Substance: METFORMIN HYDROCHLORIDE
     Indication: DIABETES MELLITUS
  14. TERIFLUNOMIDE. [Suspect]
     Active Substance: TERIFLUNOMIDE
     Indication: MULTIPLE SCLEROSIS
     Dosage: 14 MG,QD
     Route: 048
     Dates: start: 20130323
  15. NIASPAN [Concomitant]
     Active Substance: NIACIN
     Indication: BLOOD TRIGLYCERIDES
     Dosage: 500 MG,HS
     Route: 065
     Dates: start: 20120702
  16. TRICOR [Concomitant]
     Active Substance: FENOFIBRATE
     Indication: HIGH DENSITY LIPOPROTEIN
     Dosage: 145 MG,HS
     Route: 065
     Dates: start: 200410

REACTIONS (8)
  - Eye contusion [Recovered/Resolved]
  - Renal failure [Unknown]
  - Fall [Recovered/Resolved]
  - Mouth haemorrhage [Recovered/Resolved]
  - Loss of consciousness [Recovered/Resolved]
  - Dizziness [Recovered/Resolved]
  - Contusion [Recovered/Resolved]
  - Pancreatitis [Unknown]

NARRATIVE: CASE EVENT DATE: 20130408
